FAERS Safety Report 17562897 (Version 4)
Quarter: 2020Q2

REPORT INFORMATION
  Report Type: Report from Study
  Country: US (occurrence: US)
  Receive Date: 20200319
  Receipt Date: 20200612
  Transmission Date: 20200713
  Serious: Yes (Hospitalization)
  Sender: FDA-Public Use
  Company Number: US-ACTELION-A-NJ2017-161614

PATIENT
  Age: 76 Year
  Sex: Female

DRUGS (8)
  1. MEGESTROL [Concomitant]
     Active Substance: MEGESTROL
  2. ALBUTEROL. [Concomitant]
     Active Substance: ALBUTEROL
  3. NICODERM CQ [Concomitant]
     Active Substance: NICOTINE
  4. OMEPRAZOLE. [Concomitant]
     Active Substance: OMEPRAZOLE
  5. AMLODIPINE [Concomitant]
     Active Substance: AMLODIPINE BESYLATE
  6. TRAZODONE [Concomitant]
     Active Substance: TRAZODONE HYDROCHLORIDE
  7. OPSUMIT [Suspect]
     Active Substance: MACITENTAN
     Indication: PULMONARY ARTERIAL HYPERTENSION
     Dosage: 10 MG, QD
     Route: 048
     Dates: start: 20150612
  8. TUDORZA GENUAIR [Concomitant]
     Active Substance: ACLIDINIUM BROMIDE

REACTIONS (12)
  - Penetrating aortic ulcer [Recovered/Resolved]
  - Chronic obstructive pulmonary disease [Unknown]
  - Hospitalisation [Unknown]
  - Hypertension [Unknown]
  - Gastrooesophageal reflux disease [Unknown]
  - Cough [Not Recovered/Not Resolved]
  - Constipation [Unknown]
  - Hyperlipidaemia [Unknown]
  - Acute kidney injury [Unknown]
  - Cardiac disorder [Recovering/Resolving]
  - Cystitis [Recovered/Resolved]
  - Chest pain [Recovered/Resolved]

NARRATIVE: CASE EVENT DATE: 20200422
